FAERS Safety Report 6219294-5 (Version None)
Quarter: 2009Q2

REPORT INFORMATION
  Report Type: 
  Country: None (occurrence: None)
  Receive Date: 20090609
  Receipt Date: 20090529
  Transmission Date: 20091009
  Serious: Yes (Other)
  Sender: FDA-Public Use
  Company Number: US-JNJFOC-20090506213

PATIENT
  Sex: Male

DRUGS (10)
  1. REMICADE [Suspect]
     Route: 042
  2. REMICADE [Suspect]
     Indication: PSORIATIC ARTHROPATHY
     Route: 042
  3. AMBIEN [Concomitant]
     Indication: INSOMNIA
  4. METHOTREXATE SODIUM [Concomitant]
     Indication: PSORIATIC ARTHROPATHY
  5. SULFASALAZINE [Concomitant]
     Indication: PSORIATIC ARTHROPATHY
  6. FOLIC ACID [Concomitant]
  7. PREDNISONE [Concomitant]
  8. CODEINE SUL TAB [Concomitant]
  9. XANAX [Concomitant]
  10. PREVACID [Concomitant]

REACTIONS (5)
  - ARTHRALGIA [None]
  - CYST REMOVAL [None]
  - IMPAIRED HEALING [None]
  - LATENT TUBERCULOSIS [None]
  - STAPHYLOCOCCAL INFECTION [None]
